FAERS Safety Report 17667684 (Version 3)
Quarter: 2020Q3

REPORT INFORMATION
  Report Type: Report from Study
  Country: CO (occurrence: CO)
  Receive Date: 20200414
  Receipt Date: 20200907
  Transmission Date: 20201102
  Serious: Yes (Other)
  Sender: FDA-Public Use
  Company Number: CO-JNJFOC-20200407627

PATIENT
  Age: 9 Decade
  Sex: Female
  Weight: 49 kg

DRUGS (8)
  1. STELARA [Suspect]
     Active Substance: USTEKINUMAB
     Route: 058
     Dates: start: 20191205, end: 20191205
  2. LOSARTAN. [Concomitant]
     Active Substance: LOSARTAN
  3. STELARA [Suspect]
     Active Substance: USTEKINUMAB
     Route: 058
     Dates: start: 20180312, end: 20180817
  4. STELARA [Suspect]
     Active Substance: USTEKINUMAB
     Route: 058
     Dates: start: 20200219
  5. METHOTREXATE. [Concomitant]
     Active Substance: METHOTREXATE
  6. STELARA [Suspect]
     Active Substance: USTEKINUMAB
     Route: 058
     Dates: start: 20181228, end: 20190529
  7. METOPROLOL. [Concomitant]
     Active Substance: METOPROLOL
  8. STELARA [Suspect]
     Active Substance: USTEKINUMAB
     Indication: PSORIASIS
     Route: 058
     Dates: start: 20171124

REACTIONS (12)
  - Dyspepsia [Unknown]
  - Eye pain [Not Recovered/Not Resolved]
  - Intraocular pressure increased [Not Recovered/Not Resolved]
  - Ocular hyperaemia [Not Recovered/Not Resolved]
  - Eye infection fungal [Recovering/Resolving]
  - Bone pain [Not Recovered/Not Resolved]
  - Eye discharge [Recovering/Resolving]
  - Lacrimation increased [Not Recovered/Not Resolved]
  - Tinnitus [Recovering/Resolving]
  - Hypoaesthesia [Recovering/Resolving]
  - Eye irritation [Recovering/Resolving]
  - Pain [Recovering/Resolving]

NARRATIVE: CASE EVENT DATE: 2019
